FAERS Safety Report 25586642 (Version 1)
Quarter: 2025Q3

REPORT INFORMATION
  Report Type: Spontaneous
  Country: US (occurrence: None)
  Receive Date: 20250720
  Receipt Date: 20250720
  Transmission Date: 20251021
  Serious: Yes (Disabling)
  Sender: FDA-CTU
  Company Number: None

PATIENT
  Age: 78 Year
  Sex: Female
  Weight: 81 kg

DRUGS (25)
  1. CLOPIDOGREL BISULFATE [Suspect]
     Active Substance: CLOPIDOGREL BISULFATE
     Indication: Cerebrovascular accident prophylaxis
     Dosage: 1 TABLET AT BEDTIME ORAL
     Route: 048
     Dates: start: 20250414, end: 20250607
  2. LOSARTAN POTASSIUM [Suspect]
     Active Substance: LOSARTAN POTASSIUM
     Indication: Blood pressure decreased
     Dosage: OTHER QUANTITY : 1 TABLET(S);?FREQUENCY : AT BEDTIME;?
     Route: 048
     Dates: start: 20250414, end: 20250607
  3. MAGNESIUM [Suspect]
     Active Substance: MAGNESIUM
  4. MAGNESIUM [Concomitant]
     Active Substance: MAGNESIUM
  5. POTASSIUM [Concomitant]
     Active Substance: POTASSIUM
  6. VITAMIN B12 [Concomitant]
     Active Substance: CYANOCOBALAMIN
  7. COENZYME Q10 [Concomitant]
     Active Substance: DIETARY SUPPLEMENT\UBIDECARENONE
  8. KRILL OIL [Concomitant]
     Active Substance: DIETARY SUPPLEMENT\KRILL OIL
  9. ZINC [Concomitant]
     Active Substance: ZINC
  10. VITAMIN D NOS [Concomitant]
     Active Substance: CHOLECALCIFEROL\ERGOCALCIFEROL
  11. Quercein [Concomitant]
  12. Beet root [Concomitant]
  13. ALPHA LIPOIC ACID [Concomitant]
     Active Substance: .ALPHA.-LIPOIC ACID
  14. VITAMINS [Concomitant]
     Active Substance: VITAMINS
  15. MAGNESIUM [Concomitant]
     Active Substance: MAGNESIUM
  16. POTASSIUM [Concomitant]
     Active Substance: POTASSIUM
  17. B12 [Concomitant]
  18. COENZYME Q10 [Concomitant]
     Active Substance: DIETARY SUPPLEMENT\UBIDECARENONE
  19. KRILL OIL [Concomitant]
     Active Substance: DIETARY SUPPLEMENT\KRILL OIL
  20. ZINC [Concomitant]
     Active Substance: ZINC
  21. VITAMIN D NOS [Concomitant]
     Active Substance: CHOLECALCIFEROL\ERGOCALCIFEROL
  22. QUERCETIN [Concomitant]
     Active Substance: QUERCETIN
  23. Beet root [Concomitant]
  24. ALPHA LIPOIC ACID [Concomitant]
     Active Substance: .ALPHA.-LIPOIC ACID
  25. VITAMINS [Concomitant]
     Active Substance: VITAMINS

REACTIONS (9)
  - Gastrointestinal pain [None]
  - Blood pressure increased [None]
  - Weight decreased [None]
  - Nausea [None]
  - Abdominal distension [None]
  - Oedema peripheral [None]
  - Cholelithiasis [None]
  - Cholelithiasis [None]
  - Diarrhoea [None]

NARRATIVE: CASE EVENT DATE: 20250413
